FAERS Safety Report 9653648 (Version 1)
Quarter: 2013Q4

REPORT INFORMATION
  Report Type: Spontaneous
  Country: US (occurrence: US)
  Receive Date: 20131029
  Receipt Date: 20131029
  Transmission Date: 20140711
  Serious: No
  Sender: FDA-Public Use
  Company Number: US-TEVA-440940USA

PATIENT
  Sex: 0

DRUGS (2)
  1. AZILECT [Suspect]
     Route: 048
  2. DEMEROL [Concomitant]
     Indication: PAIN

REACTIONS (1)
  - Drug administration error [Unknown]
